FAERS Safety Report 7206744-0 (Version None)
Quarter: 2011Q1

REPORT INFORMATION
  Report Type: 
  Country: None (occurrence: None)
  Receive Date: 20110103
  Receipt Date: 20101230
  Transmission Date: 20110831
  Serious: Yes (Hospitalization)
  Sender: FDA-Public Use
  Company Number: FI-PFIZER INC-2010173441

PATIENT
  Age: 64 Year
  Sex: Male
  Weight: 85 kg

DRUGS (11)
  1. THYROXIN [Concomitant]
     Indication: HYPOTHYROIDISM
     Dosage: UNK
     Dates: start: 20090827
  2. SERETIDE EVOHALER [Concomitant]
     Indication: CHRONIC OBSTRUCTIVE PULMONARY DISEASE
     Dosage: UNK
     Dates: start: 20101027
  3. SPIRIVA [Concomitant]
     Indication: CHRONIC OBSTRUCTIVE PULMONARY DISEASE
     Dosage: UNK
     Dates: start: 20101027, end: 20101215
  4. SUNITINIB MALATE [Suspect]
     Indication: METASTATIC RENAL CELL CARCINOMA
     Dosage: 50 MG, 1X/DAY, 4 WEEKS/2 WEEKS PAUSE
     Route: 048
     Dates: start: 20061012, end: 20101214
  5. HYDREX [Concomitant]
     Indication: HYPERTENSION
     Dosage: UNK
     Dates: start: 20080515
  6. BISOPROLOL [Concomitant]
     Indication: HYPERTENSION
     Dosage: UNK
     Dates: start: 20080402
  7. SOMAC [Concomitant]
     Indication: DYSPEPSIA
     Dosage: UNK
     Dates: start: 20070914
  8. LOPERAMIDE [Concomitant]
     Indication: DIARRHOEA
     Dosage: UNK
     Dates: start: 20080221
  9. APURIN [Concomitant]
     Indication: BLOOD URIC ACID INCREASED
     Dosage: UNK
     Dates: start: 20070827
  10. VENTOLIN [Concomitant]
     Indication: CHRONIC OBSTRUCTIVE PULMONARY DISEASE
     Dosage: UNK
     Dates: start: 20101027
  11. CARDACE [Concomitant]
     Indication: HYPERTENSION
     Dosage: UNK
     Dates: start: 20080515

REACTIONS (1)
  - PNEUMONIA [None]
